FAERS Safety Report 7439102-4 (Version None)
Quarter: 2011Q2

REPORT INFORMATION
  Report Type: 
  Country: None (occurrence: None)
  Receive Date: 20110427
  Receipt Date: 20110412
  Transmission Date: 20111010
  Serious: Yes (Other)
  Sender: FDA-Public Use
  Company Number: IT-JNJFOC-20110405804

PATIENT
  Age: 51 Year
  Sex: Female

DRUGS (4)
  1. ARIXTRA [Concomitant]
     Route: 065
  2. LYRICA [Concomitant]
     Route: 065
  3. EUTIROX [Concomitant]
     Indication: ILL-DEFINED DISORDER
     Route: 065
  4. DOXORUBICIN HCL [Suspect]
     Indication: OVARIAN CANCER METASTATIC
     Route: 042

REACTIONS (5)
  - HYPERSENSITIVITY [None]
  - PARAESTHESIA ORAL [None]
  - RESPIRATORY TRACT OEDEMA [None]
  - UPPER AIRWAY OBSTRUCTION [None]
  - INFUSION RELATED REACTION [None]
